FAERS Safety Report 15701937 (Version 6)
Quarter: 2019Q2

REPORT INFORMATION
  Report Type: Report from Study
  Country: None (occurrence: CH)
  Receive Date: 20181209
  Receipt Date: 20190410
  Transmission Date: 20190711
  Serious: Yes (Hospitalization, Other)
  Sender: FDA-Public Use
  Company Number: CH-ABBVIE-18S-151-2582077-00

PATIENT
  Age: 76 Year
  Sex: Male

DRUGS (9)
  1. DUODOPA [Suspect]
     Active Substance: CARBIDOPA\LEVODOPA
     Dosage: MD: 3.5 ML, CRD: 3.5 ML/H, CRN: 2 ML/H, ED: 1.5 ML, 16 H THERAPY
     Route: 050
     Dates: start: 20190121, end: 20190124
  2. DUODOPA [Suspect]
     Active Substance: CARBIDOPA\LEVODOPA
     Dosage: MD 3ML CR 3.3ML/H ED 1.2ML 16H THERAPY
     Route: 050
     Dates: start: 20180906
  3. DUODOPA [Suspect]
     Active Substance: CARBIDOPA\LEVODOPA
     Indication: PARKINSON^S DISEASE
     Route: 050
     Dates: start: 20171212, end: 20180906
  4. DUODOPA [Suspect]
     Active Substance: CARBIDOPA\LEVODOPA
     Dosage: MD 6.5ML CR 3.4ML/H ED 1.2ML 16H THERAPY
     Route: 050
     Dates: end: 20181205
  5. DUODOPA [Suspect]
     Active Substance: CARBIDOPA\LEVODOPA
     Dosage: MD 6.5ML CR 3.5ML/H ED 1.5ML ?24H THERAPY
     Route: 050
     Dates: start: 20181205, end: 20190121
  6. DUODOPA [Suspect]
     Active Substance: CARBIDOPA\LEVODOPA
     Dosage: MD: 3.5 ML, CR DAY: 3.5 ML/H, CR NIGHT: 2.1 ML/H, ED: 1.5 ML, 24 H THERAPY
     Route: 050
     Dates: start: 20190124, end: 20190317
  7. DUODOPA [Suspect]
     Active Substance: CARBIDOPA\LEVODOPA
     Dosage: MD 3.5 ML, CR DAY 3.5 ML/H, CR NIGHT 2.1 ML/H, ED 1.5 ML 24 H THERAPY
     Route: 050
     Dates: start: 20190317, end: 20190322
  8. DUODOPA [Suspect]
     Active Substance: CARBIDOPA\LEVODOPA
     Dosage: MD 6.5ML CR 3.4ML/H ED 1.5ML 16H THERAPY
     Route: 050
     Dates: start: 20181205
  9. DUODOPA [Suspect]
     Active Substance: CARBIDOPA\LEVODOPA
     Dosage: MD 3.5 ML, CRD 3.5 ML/H, CRN 2.1 ML/H, ED 1.5 ML 24H THERAPY
     Route: 050
     Dates: start: 20190322

REACTIONS (15)
  - Device occlusion [Recovered/Resolved]
  - Fall [Recovered/Resolved]
  - Device programming error [Recovered/Resolved]
  - Excessive granulation tissue [Recovered/Resolved]
  - Medication error [Recovered/Resolved]
  - Hypotension [Unknown]
  - Unevaluable event [Not Recovered/Not Resolved]
  - Product administration interrupted [Recovered/Resolved]
  - Stoma site erythema [Recovered/Resolved]
  - Stoma site irritation [Unknown]
  - Fall [Recovered/Resolved]
  - Rib fracture [Recovered/Resolved]
  - Off label use [Recovered/Resolved]
  - Hallucination [Recovered/Resolved]
  - Device occlusion [Recovered/Resolved]

NARRATIVE: CASE EVENT DATE: 20181103
